FAERS Safety Report 8523517-7 (Version None)
Quarter: 2012Q3

REPORT INFORMATION
  Report Type: 
  Country: None (occurrence: None)
  Receive Date: 20120720
  Receipt Date: 20120712
  Transmission Date: 20120928
  Serious: Yes (Life-Threatening, Hospitalization)
  Sender: FDA-Public Use
  Company Number: CA-JNJFOC-20120707184

PATIENT
  Sex: Female
  Weight: 111.13 kg

DRUGS (5)
  1. VITAMIN B-12 [Concomitant]
     Dosage: IN AM
     Route: 065
  2. TRAZODONE HYDROCHLORIDE [Concomitant]
     Route: 048
     Dates: end: 20120101
  3. REMICADE [Suspect]
     Indication: RHEUMATOID ARTHRITIS
     Route: 042
     Dates: start: 20060821, end: 20090909
  4. SERTRALINE HYDROCHLORIDE [Concomitant]
     Route: 048
     Dates: end: 20120101
  5. OXYCET [Concomitant]
     Route: 048
     Dates: end: 20120101

REACTIONS (3)
  - LYMPHOMA [None]
  - LUNG NEOPLASM MALIGNANT [None]
  - URTICARIA [None]
